FAERS Safety Report 4549542-9 (Version None)
Quarter: 2005Q1

REPORT INFORMATION
  Report Type: 
  Country: None (occurrence: None)
  Receive Date: 20050111
  Receipt Date: 20050104
  Transmission Date: 20050727
  Serious: Yes (Hospitalization)
  Sender: FDA-Public Use
  Company Number: FR-ROCHE-391212

PATIENT
  Age: 72 Year
  Sex: Female

DRUGS (4)
  1. TICLID [Suspect]
     Indication: DRUG USE FOR UNKNOWN INDICATION
     Route: 048
     Dates: end: 20040824
  2. ALLOPURINOL [Concomitant]
     Route: 048
  3. TAHOR [Concomitant]
     Route: 048
  4. TRIATEC [Concomitant]
     Route: 048

REACTIONS (8)
  - APHASIA [None]
  - CEREBRAL HAEMORRHAGE TRAUMATIC [None]
  - EPILEPSY [None]
  - FALL [None]
  - INTRACRANIAL PRESSURE INCREASED [None]
  - LOSS OF CONSCIOUSNESS [None]
  - MENINGORRHAGIA [None]
  - SKULL FRACTURE [None]
